FAERS Safety Report 9445365 (Version 1)
Quarter: 2013Q3

REPORT INFORMATION
  Report Type: Spontaneous
  Country: DE (occurrence: None)
  Receive Date: 20130802
  Receipt Date: 20130802
  Transmission Date: 20140515
  Serious: Yes (Congenital Anomaly, Other)
  Sender: FDA-Public Use
  Company Number: USA/GER/13/0033834

PATIENT
  Sex: 0

DRUGS (12)
  1. METROPROLOL [Suspect]
     Indication: PRODUCT USED FOR UNKNOWN INDICATION
     Dosage: UKNOWN TRANSPLACENTAL
     Route: 064
  2. ALLOPURINOL [Suspect]
     Indication: PRODUCT USED FOR UNKNOWN INDICATION
     Dosage: TRANSPLACENTAL
  3. ALPHA-METHYLDOPA [Suspect]
     Indication: PRODUCT USED FOR UNKNOWN INDICATION
     Dosage: UKNOWN TRANSPLACENTAL
  4. MOXONIDINE [Suspect]
     Indication: PRODUCT USED FOR UNKNOWN INDICATION
  5. FUROSEMIDE [Suspect]
     Dosage: UKNOWN TRANSPLACENTAL
     Route: 064
  6. CLONIDINE [Suspect]
     Indication: PRODUCT USED FOR UNKNOWN INDICATION
     Dosage: UKNOWN TRANSPLACENTAL
     Route: 064
  7. DARBEPOETIN ALFA [Suspect]
     Indication: PRODUCT USED FOR UNKNOWN INDICATION
     Dosage: UKNOWN TRANSPLACENTAL
     Route: 064
  8. DANAPAROID [Suspect]
     Indication: PRODUCT USED FOR UNKNOWN INDICATION
     Dosage: UKNOWN TRANSPLACENTAL
     Route: 064
  9. ENOXAPARIN [Suspect]
     Indication: PRODUCT USED FOR UNKNOWN INDICATION
     Dosage: UKNOWN TRANSPLACENTAL
     Route: 064
  10. CORTICOSTEROID [Suspect]
     Indication: PRODUCT USED FOR UNKNOWN INDICATION
     Dosage: UKNOWN TRANSPLACENTAL
     Route: 064
  11. COLECALCIFEROL [Suspect]
     Indication: PRODUCT USED FOR UNKNOWN INDICATION
     Dosage: UKNOWN TRANSPLACENTAL
     Route: 064
  12. ALFACALCIDOL [Suspect]
     Indication: PRODUCT USED FOR UNKNOWN INDICATION
     Route: 064

REACTIONS (4)
  - Congenital umbilical hernia [None]
  - Patent ductus arteriosus [None]
  - Atrial septal defect [None]
  - Premature baby [None]
